FAERS Safety Report 13464697 (Version 1)
Quarter: 2017Q2

REPORT INFORMATION
  Report Type: Spontaneous
  Country: US (occurrence: US)
  Receive Date: 20170420
  Receipt Date: 20170420
  Transmission Date: 20170830
  Serious: Yes (Other)
  Sender: FDA-Public Use
  Company Number: US-ROCHE-724512

PATIENT
  Age: 26 Year
  Sex: Female
  Weight: 66.7 kg

DRUGS (2)
  1. ACCUTANE [Suspect]
     Active Substance: ISOTRETINOIN
     Route: 048
     Dates: start: 19980420, end: 19980922
  2. ACCUTANE [Suspect]
     Active Substance: ISOTRETINOIN
     Indication: ACNE
     Route: 048
     Dates: start: 199704, end: 199708

REACTIONS (8)
  - Rectal haemorrhage [Unknown]
  - Inflammatory bowel disease [Unknown]
  - Headache [Recovering/Resolving]
  - Colitis ulcerative [Unknown]
  - Proctitis [Unknown]
  - Nausea [Unknown]
  - Abdominal pain [Unknown]
  - Depression [Unknown]

NARRATIVE: CASE EVENT DATE: 19970430
